FAERS Safety Report 8138449-6 (Version None)
Quarter: 2012Q1

REPORT INFORMATION
  Report Type: 
  Country: None (occurrence: None)
  Receive Date: 20120215
  Receipt Date: 20120210
  Transmission Date: 20120608
  Serious: Yes (Death)
  Sender: FDA-Public Use
  Company Number: JP-BAYER-2012-013810

PATIENT
  Age: 75 Year
  Sex: Male
  Weight: 55 kg

DRUGS (8)
  1. NEXAVAR [Suspect]
     Indication: HEPATIC NEOPLASM MALIGNANT
     Dosage: DAILY DOSE 400 MG
     Route: 048
     Dates: start: 20110720, end: 20110801
  2. BASEN [Concomitant]
     Dosage: DAILY DOSE .9 MG
     Route: 048
     Dates: end: 20110801
  3. TAMSULOSIN HCL [Concomitant]
     Dosage: DAILY DOSE .1 MG
     Route: 048
     Dates: end: 20110801
  4. TAURINE [Concomitant]
     Dosage: DAILY DOSE 3.06 G
     Route: 048
     Dates: end: 20110801
  5. TENORMIN [Concomitant]
     Dosage: DAILY DOSE 50 MG
     Route: 048
     Dates: end: 20110801
  6. LASIX [Concomitant]
     Dosage: DAILY DOSE 40 MG
     Route: 048
     Dates: end: 20110801
  7. GLAKAY [Concomitant]
     Dosage: DAILY DOSE 45 MG
     Route: 048
     Dates: end: 20110801
  8. URSO 250 [Concomitant]
     Dosage: DAILY DOSE 600 MG
     Route: 048
     Dates: end: 20110801

REACTIONS (2)
  - DIARRHOEA [None]
  - HEPATIC FAILURE [None]
